FAERS Safety Report 4494023-4 (Version None)
Quarter: 2004Q4

REPORT INFORMATION
  Report Type: 
  Country: None (occurrence: None)
  Receive Date: 20041105
  Receipt Date: 20041013
  Transmission Date: 20050328
  Serious: Yes (Other)
  Sender: FDA-Public Use
  Company Number: 200413186JP

PATIENT
  Age: 60 Year
  Sex: Male

DRUGS (3)
  1. AMARYL [Suspect]
     Indication: BLOOD GLUCOSE ABNORMAL
     Route: 048
     Dates: start: 20040714, end: 20040901
  2. GLUCOBAY [Suspect]
     Route: 048
     Dates: start: 20040714, end: 20040901
  3. KINEDAK [Concomitant]
     Route: 048
     Dates: start: 20040821, end: 20040901

REACTIONS (1)
  - ALOPECIA [None]
